FAERS Safety Report 8968728 (Version 1)
Quarter: 2012Q4

REPORT INFORMATION
  Report Type: 
  Country: US (occurrence: US)
  Receive Date: 20121218
  Receipt Date: 20121218
  Transmission Date: 20130627
  Serious: No
  Sender: FDA-Public Use
  Company Number: US-BRISTOL-MYERS SQUIBB COMPANY-16718546

PATIENT
  Age: 66 Year
  Sex: Female

DRUGS (1)
  1. ABILIFY [Suspect]
     Dates: start: 201004

REACTIONS (10)
  - Polydipsia [Unknown]
  - Diplopia [Unknown]
  - Constipation [Unknown]
  - Fatigue [Unknown]
  - Headache [Unknown]
  - Musculoskeletal pain [Unknown]
  - Photosensitivity reaction [Unknown]
  - Restlessness [Unknown]
  - Syncope [Unknown]
  - Urinary incontinence [Unknown]
